FAERS Safety Report 5282849-9 (Version None)
Quarter: 2007Q1

REPORT INFORMATION
  Report Type: 
  Country: None (occurrence: None)
  Receive Date: 20070326
  Receipt Date: 20070312
  Transmission Date: 20070707
  Serious: Yes (Other)
  Sender: FDA-Public Use
  Company Number: GB-1162196

PATIENT
  Age: 87 Year
  Sex: Male

DRUGS (1)
  1. LEVOBUNOLOL HCL [Suspect]
     Indication: GLAUCOMA
     Dosage: EYE DROPS, SOLUTION BID OPHTHALMIC
     Route: 047

REACTIONS (4)
  - FALL [None]
  - HEART RATE DECREASED [None]
  - SYNCOPE [None]
  - UNRESPONSIVE TO STIMULI [None]
